FAERS Safety Report 22976097 (Version 2)
Quarter: 2025Q3

REPORT INFORMATION
  Report Type: Spontaneous
  Country: CL (occurrence: CL)
  Receive Date: 20230925
  Receipt Date: 20250827
  Transmission Date: 20251021
  Serious: Yes (Death, Hospitalization)
  Sender: NOVO NORDISK
  Company Number: CL-NOVOPROD-1115854

PATIENT
  Age: 82 Year
  Sex: Female

DRUGS (1)
  1. TRESIBA [Suspect]
     Active Substance: INSULIN DEGLUDEC
     Indication: Product used for unknown indication

REACTIONS (3)
  - Hip fracture [Fatal]
  - Fall [Unknown]
  - Renal failure [Unknown]
